FAERS Safety Report 8823485 (Version 1)
Quarter: 2012Q4

REPORT INFORMATION
  Report Type: 
  Country: US (occurrence: US)
  Receive Date: 20121003
  Receipt Date: 20121003
  Transmission Date: 20130627
  Serious: Yes (Other)
  Sender: FDA-Public Use
  Company Number: US-MERCK-1208USA007154

PATIENT
  Sex: Male
  Weight: 81.63 kg

DRUGS (2)
  1. PEG-INTRON [Suspect]
     Indication: HEPATITIS C
     Dosage: Redipen
     Dates: start: 20110513, end: 20120417
  2. REBETOL [Suspect]
     Indication: HEPATITIS C
     Dosage: UNK
     Dates: start: 20110513, end: 20120417

REACTIONS (16)
  - Weight decreased [Unknown]
  - General physical health deterioration [Unknown]
  - Anaemia [Unknown]
  - Red blood cell count abnormal [Unknown]
  - White blood cell count abnormal [Unknown]
  - Kidney enlargement [Unknown]
  - Chromaturia [Unknown]
  - Hepatomegaly [Unknown]
  - Muscle spasms [Unknown]
  - Pain [Unknown]
  - Bone disorder [Unknown]
  - Osteopenia [Unknown]
  - Hepatic pain [Unknown]
  - Drug ineffective [Unknown]
  - Asthenia [Unknown]
  - Fatigue [Unknown]
